FAERS Safety Report 7619889-8 (Version None)
Quarter: 2011Q3

REPORT INFORMATION
  Report Type: 
  Country: None (occurrence: None)
  Receive Date: 20110719
  Receipt Date: 20110705
  Transmission Date: 20111222
  Serious: Yes (Hospitalization)
  Sender: FDA-Public Use
  Company Number: IL-SANOFI-AVENTIS-2011SA044083

PATIENT
  Age: 68 Year
  Sex: Female
  Weight: 110 kg

DRUGS (6)
  1. DRONEDARONE HCL [Suspect]
     Indication: ATRIAL FIBRILLATION
     Route: 048
     Dates: start: 20110313
  2. WARFARIN SODIUM [Concomitant]
  3. FUROSEMIDE [Concomitant]
     Dates: start: 20110317
  4. FUROSEMIDE [Concomitant]
     Indication: HYPERTENSION
  5. SIMVASTATIN [Concomitant]
  6. ENALAPRIL MALEATE [Concomitant]

REACTIONS (1)
  - CARDIAC FAILURE [None]
